FAERS Safety Report 8851082 (Version 2)
Quarter: 2012Q4

REPORT INFORMATION
  Report Type: 
  Country: US (occurrence: US)
  Receive Date: 20121019
  Receipt Date: 20121025
  Transmission Date: 20130627
  Serious: Yes (Other)
  Sender: FDA-Public Use
  Company Number: US-PFIZER INC-2012259730

PATIENT
  Sex: Male

DRUGS (1)
  1. PANTOPRAZOLE [Suspect]
     Indication: GASTRIC DISORDER
     Dosage: 40 mg, 1x/day
     Route: 048

REACTIONS (3)
  - Neoplasm malignant [Unknown]
  - Stem cell transplant [Unknown]
  - Stent placement [Unknown]
